FAERS Safety Report 24977604 (Version 1)
Quarter: 2025Q1

REPORT INFORMATION
  Report Type: Spontaneous
  Country: US (occurrence: US)
  Receive Date: 20250217
  Receipt Date: 20250217
  Transmission Date: 20250409
  Serious: Yes (Other)
  Sender: GLAXOSMITHKLINE
  Company Number: US-GSK-US2025017140

PATIENT

DRUGS (1)
  1. TRELEGY ELLIPTA [Suspect]
     Active Substance: FLUTICASONE FUROATE\UMECLIDINIUM BROMIDE\VILANTEROL TRIFENATATE
     Indication: Chronic obstructive pulmonary disease

REACTIONS (7)
  - Pneumonia [Unknown]
  - Pulmonary fibrosis [Unknown]
  - Coronary artery bypass [Unknown]
  - Coronary arterial stent insertion [Unknown]
  - Cholecystectomy [Unknown]
  - Aortic valve replacement [Unknown]
  - Pancreatic disorder [Unknown]
